FAERS Safety Report 6758168-8 (Version None)
Quarter: 2010Q2

REPORT INFORMATION
  Report Type: 
  Country: None (occurrence: None)
  Receive Date: 20100524
  Receipt Date: 20100219
  Transmission Date: 20101027
  Serious: No
  Sender: FDA-Public Use
  Company Number: 007415

PATIENT
  Sex: Female

DRUGS (13)
  1. CIMZIA [Suspect]
     Indication: CROHN'S DISEASE
     Dosage: 400 MG MONTHLY SUBCUTANEOUS
     Route: 058
     Dates: start: 20081030
  2. . [Concomitant]
  3. . [Concomitant]
  4. . [Concomitant]
  5. . [Concomitant]
  6. . [Concomitant]
  7. . [Concomitant]
  8. . [Concomitant]
  9. . [Concomitant]
  10. . [Concomitant]
  11. . [Concomitant]
  12. . [Concomitant]
  13. . [Concomitant]

REACTIONS (3)
  - AXILLARY MASS [None]
  - TONGUE DISCOLOURATION [None]
  - TONGUE ULCERATION [None]
